FAERS Safety Report 6858295-0 (Version None)
Quarter: 2010Q3

REPORT INFORMATION
  Report Type: 
  Country: None (occurrence: None)
  Receive Date: 20100719
  Receipt Date: 20080222
  Transmission Date: 20110219
  Serious: Yes (Other)
  Sender: FDA-Public Use
  Company Number: US-PFIZER INC-2008012505

PATIENT
  Sex: Male
  Weight: 83.9 kg

DRUGS (5)
  1. CHANTIX [Suspect]
     Indication: SMOKING CESSATION THERAPY
     Dates: start: 20071101
  2. DEPAKOTE [Concomitant]
  3. ZYPREXA [Concomitant]
  4. ANTIPSYCHOTICS [Concomitant]
  5. DRUG, UNSPECIFIED [Concomitant]

REACTIONS (3)
  - DRUG ADMINISTRATION ERROR [None]
  - MENTAL DISORDER [None]
  - SUICIDAL IDEATION [None]
